FAERS Safety Report 5085381-0 (Version None)
Quarter: 2006Q3

REPORT INFORMATION
  Report Type: 
  Country: None (occurrence: None)
  Receive Date: 20060731
  Receipt Date: 20060504
  Transmission Date: 20061208
  Serious: Yes (Hospitalization, Other)
  Sender: FDA-Public Use
  Company Number: 200610786BWH

PATIENT
  Age: 55 Year
  Sex: Female

DRUGS (5)
  1. AVELOX [Suspect]
     Indication: OTITIS MEDIA
     Dosage: 400 MG,ONCE, ORAL
     Route: 048
     Dates: start: 20060203
  2. AVELOX [Suspect]
     Indication: SINUSITIS
     Dosage: 400 MG,ONCE, ORAL
     Route: 048
     Dates: start: 20060203
  3. VYTORIN [Concomitant]
  4. TRICOR [Concomitant]
  5. PREMPRO [Concomitant]

REACTIONS (17)
  - ANAPHYLACTIC REACTION [None]
  - ANXIETY [None]
  - ASTHENIA [None]
  - BLOOD GLUCOSE INCREASED [None]
  - DIZZINESS [None]
  - DYSPNOEA [None]
  - ERYTHEMA [None]
  - EYE SWELLING [None]
  - FEELING HOT [None]
  - GENERALISED ERYTHEMA [None]
  - MALAISE [None]
  - PALMAR ERYTHEMA [None]
  - PHARYNGEAL OEDEMA [None]
  - PRURITUS [None]
  - SWELLING FACE [None]
  - TREMOR [None]
  - URTICARIA GENERALISED [None]
